FAERS Safety Report 6717672-9 (Version None)
Quarter: 2010Q2

REPORT INFORMATION
  Report Type: 
  Country: None (occurrence: None)
  Receive Date: 20100507
  Receipt Date: 20100507
  Transmission Date: 20101027
  Serious: Yes (Hospitalization)
  Sender: FDA-Public Use
  Company Number: None

PATIENT
  Age: 20 Year
  Sex: Male
  Weight: 50 kg

DRUGS (1)
  1. ARGATROBAN [Suspect]
     Indication: HEPARIN-INDUCED THROMBOCYTOPENIA
     Dosage: 0.2MCG/KG/MIN CONTINUOUS INFUSIO IV
     Route: 042
     Dates: start: 20100505, end: 20100506

REACTIONS (2)
  - BLOOD URINE PRESENT [None]
  - PULMONARY HAEMORRHAGE [None]
